FAERS Safety Report 25487919 (Version 1)
Quarter: 2025Q2

REPORT INFORMATION
  Report Type: Report from Study
  Country: US (occurrence: US)
  Receive Date: 20250627
  Receipt Date: 20250627
  Transmission Date: 20250716
  Serious: Yes (Other)
  Sender: TAKEDA
  Company Number: US-TAKEDA-2025TUS055445

PATIENT
  Age: 81 Year
  Sex: Female

DRUGS (3)
  1. VEDOLIZUMAB [Suspect]
     Active Substance: VEDOLIZUMAB
     Indication: Colitis ulcerative
  2. TRAZODONE [Suspect]
     Active Substance: TRAZODONE HYDROCHLORIDE
     Indication: Insomnia
  3. LOMOTIL [Concomitant]
     Active Substance: ATROPINE SULFATE\DIPHENOXYLATE HYDROCHLORIDE
     Indication: Diarrhoea

REACTIONS (16)
  - Colitis ulcerative [Unknown]
  - Rash pruritic [Unknown]
  - Sensitive skin [Unknown]
  - Inappropriate schedule of product administration [Unknown]
  - Insomnia [Unknown]
  - Discouragement [Unknown]
  - Dry mouth [Unknown]
  - Drug level decreased [Unknown]
  - Anxiety [Unknown]
  - Depression [Unknown]
  - Dyspnoea [Unknown]
  - Dizziness [Unknown]
  - Asthenia [Unknown]
  - Fatigue [Unknown]
  - Pain in extremity [Unknown]
  - Arthralgia [Unknown]
